FAERS Safety Report 7357222-X (Version None)
Quarter: 2011Q1

REPORT INFORMATION
  Report Type: 
  Country: None (occurrence: None)
  Receive Date: 20110317
  Receipt Date: 20110308
  Transmission Date: 20110831
  Serious: No
  Sender: FDA-Public Use
  Company Number: US-PFIZER INC-2011020733

PATIENT
  Sex: Male

DRUGS (3)
  1. NICOTINE [Suspect]
     Dosage: 14 MG, UNK
     Route: 062
  2. NICOTINE [Suspect]
     Dosage: 21 MG, UNK
     Route: 062
  3. CHANTIX [Suspect]
     Dosage: UNK

REACTIONS (2)
  - SKIN IRRITATION [None]
  - IRRITABILITY [None]
